FAERS Safety Report 5128948-3 (Version None)
Quarter: 2006Q4

REPORT INFORMATION
  Report Type: 
  Country: None (occurrence: None)
  Receive Date: 20061011
  Receipt Date: 20060925
  Transmission Date: 20070319
  Serious: Yes (Other)
  Sender: FDA-Public Use
  Company Number: US-2006-016501

PATIENT
  Age: 43 Year
  Sex: Female
  Weight: 117.9 kg

DRUGS (1)
  1. BETASERON [Suspect]
     Indication: MULTIPLE SCLEROSIS
     Dosage: 8 MIU, EVERY 2D, SUBCUTANEOUS
     Route: 058
     Dates: start: 19980302

REACTIONS (4)
  - BACK PAIN [None]
  - INJECTION SITE MASS [None]
  - INJECTION SITE PAIN [None]
  - SURGERY [None]
